FAERS Safety Report 10097980 (Version 1)
Quarter: 2014Q2

REPORT INFORMATION
  Report Type: Spontaneous
  Country: US (occurrence: US)
  Receive Date: 20140423
  Receipt Date: 20140423
  Transmission Date: 20141212
  Serious: Yes (Hospitalization, Other)
  Sender: FDA-Public Use
  Company Number: US-BRISTOL-MYERS SQUIBB COMPANY-20620530

PATIENT
  Age: 70 Year
  Sex: Female
  Weight: 80 kg

DRUGS (2)
  1. ELIQUIS [Suspect]
     Indication: CEREBROVASCULAR ACCIDENT PROPHYLAXIS
  2. CYCLOSPORINE [Suspect]

REACTIONS (2)
  - Cerebral haemorrhage [Unknown]
  - Renal transplant [Unknown]
